FAERS Safety Report 19412618 (Version 1)
Quarter: 2021Q2

REPORT INFORMATION
  Report Type: Spontaneous
  Country: SA (occurrence: SA)
  Receive Date: 20210614
  Receipt Date: 20210614
  Transmission Date: 20210717
  Serious: Yes (Hospitalization)
  Sender: FDA-Public Use
  Company Number: SA-AMNEAL PHARMACEUTICALS-2021-AMRX-02197

PATIENT
  Age: 9 Year
  Sex: Female

DRUGS (2)
  1. VORICONAZOLE. [Suspect]
     Active Substance: VORICONAZOLE
     Indication: PSEUDALLESCHERIA INFECTION
     Dosage: 8MG/KG 2 /DAY
     Route: 048
  2. AMPHOTERICIN B. [Concomitant]
     Active Substance: AMPHOTERICIN B
     Indication: PSEUDALLESCHERIA INFECTION
     Dosage: 5 MG/KG
     Route: 065

REACTIONS (1)
  - Rhabdomyolysis [Recovered/Resolved]
